FAERS Safety Report 17446816 (Version 1)
Quarter: 2020Q1

REPORT INFORMATION
  Report Type: Spontaneous
  Country: GB (occurrence: GB)
  Receive Date: 20200221
  Receipt Date: 20200221
  Transmission Date: 20200409
  Serious: Yes (Hospitalization, Other)
  Sender: FDA-Public Use
  Company Number: GB-SA-2020SA044147

PATIENT
  Age: 62 Year
  Sex: Male

DRUGS (2)
  1. ELIGLUSTAT. [Suspect]
     Active Substance: ELIGLUSTAT
     Indication: GAUCHER^S DISEASE
     Route: 048
     Dates: start: 20200110
  2. IMIGLUCERASE [Concomitant]
     Active Substance: IMIGLUCERASE
     Dosage: UNK, UNK
     Route: 065

REACTIONS (3)
  - Pancreatitis acute [Not Recovered/Not Resolved]
  - Splenomegaly [Unknown]
  - Abdominal pain [Unknown]

NARRATIVE: CASE EVENT DATE: 20200131
